FAERS Safety Report 9598383 (Version 1)
Quarter: 2013Q4

REPORT INFORMATION
  Report Type: Spontaneous
  Country: US (occurrence: US)
  Receive Date: 20131004
  Receipt Date: 20131004
  Transmission Date: 20140711
  Serious: No
  Sender: FDA-Public Use
  Company Number: US-AMGEN-USASP2013023545

PATIENT
  Age: 54 Year
  Sex: Female

DRUGS (6)
  1. ENBREL [Suspect]
     Indication: PRODUCT USED FOR UNKNOWN INDICATION
     Dosage: 50 MG, QWK
  2. PATANASE [Concomitant]
     Dosage: 0.6 %, UNK
  3. NASONEX [Concomitant]
     Dosage: 50 MCG/AC, UNK
  4. ATENOLOL [Concomitant]
     Dosage: 25 MG, UNK
  5. CELEXA                             /00582602/ [Concomitant]
     Dosage: 10 MG, UNK
  6. ALEVE [Concomitant]
     Dosage: 220 MG, UNK

REACTIONS (3)
  - Limb injury [Unknown]
  - Skin discolouration [Unknown]
  - Limb discomfort [Unknown]
